FAERS Safety Report 21179941 (Version 1)
Quarter: 2022Q3

REPORT INFORMATION
  Report Type: Report from Study
  Country: DE (occurrence: DE)
  Receive Date: 20220805
  Receipt Date: 20220805
  Transmission Date: 20221026
  Serious: Yes (Hospitalization)
  Sender: FDA-Public Use
  Company Number: DE-JNJFOC-20210424607

PATIENT
  Sex: Male
  Weight: 85 kg

DRUGS (5)
  1. IBRUTINIB [Suspect]
     Active Substance: IBRUTINIB
     Indication: Waldenstrom^s macroglobulinaemia
     Dosage: LAST ADMINISTRATION DOSE 07/APR/2021
     Route: 048
     Dates: start: 20200826
  2. IBRUTINIB [Suspect]
     Active Substance: IBRUTINIB
     Dosage: LAST ADMINISTRATION DOSE 25/MAR/2021
     Route: 048
     Dates: start: 20200826
  3. BORTEZOMIB [Concomitant]
     Active Substance: BORTEZOMIB
     Indication: Waldenstrom^s macroglobulinaemia
     Dosage: DAY 1,8,15 EVERY CYCLE, LAST DOSE ADMINISTERED 27-JAN-2021.
     Route: 058
     Dates: start: 20200826
  4. RITUXIMAB [Concomitant]
     Active Substance: RITUXIMAB
     Indication: Waldenstrom^s macroglobulinaemia
     Dosage: DAY 1 EVERY CYCLE, LAST DOSE ADMINISTERED WAS 10-FEB-2021
     Route: 058
     Dates: start: 20200923
  5. RITUXIMAB [Concomitant]
     Active Substance: RITUXIMAB
     Indication: Waldenstrom^s macroglobulinaemia
     Dosage: DAY1 EVERY CYCLE; LAST DOSE ADMINISTERED 26/AUG/2020.
     Dates: start: 20200826

REACTIONS (1)
  - Oral herpes [Recovered/Resolved]

NARRATIVE: CASE EVENT DATE: 20210325
